FAERS Safety Report 13171577 (Version 3)
Quarter: 2017Q1

REPORT INFORMATION
  Report Type: Spontaneous
  Country: US (occurrence: US)
  Receive Date: 20170201
  Receipt Date: 20170303
  Transmission Date: 20170428
  Serious: Yes (Hospitalization, Other)
  Sender: FDA-Public Use
  Company Number: US-ABBVIE-17K-163-1846749-00

PATIENT
  Age: 0 Day
  Sex: Male

DRUGS (1)
  1. HUMIRA [Suspect]
     Active Substance: ADALIMUMAB
     Indication: EXPOSURE VIA BODY FLUID
     Route: 050

REACTIONS (5)
  - Neonatal respiratory distress syndrome [Recovered/Resolved]
  - Foetal exposure during pregnancy [Unknown]
  - Premature baby [Unknown]
  - Paternal drugs affecting foetus [Unknown]
  - Pulmonary malformation [Unknown]

NARRATIVE: CASE EVENT DATE: 20161211
